FAERS Safety Report 6043096-6 (Version None)
Quarter: 2009Q1

REPORT INFORMATION
  Report Type: 
  Country: None (occurrence: None)
  Receive Date: 20090119
  Receipt Date: 20090105
  Transmission Date: 20090719
  Serious: Yes (Other)
  Sender: FDA-Public Use
  Company Number: IT-ROCHE-606963

PATIENT
  Age: 47 Year
  Sex: Male

DRUGS (8)
  1. PEG-INTERFERON A-2A (RO 25-8310) [Suspect]
     Route: 065
     Dates: start: 20040301, end: 20040801
  2. RIBAVIRIN [Suspect]
     Dosage: 2 TABLETS IN THE MORNING AND 3 IN THE EVENING.
     Route: 065
     Dates: start: 20040301, end: 20040801
  3. STAVUDINE [Concomitant]
     Dates: start: 19980101, end: 20050501
  4. LAMIVUDINE [Concomitant]
     Dates: start: 19980101
  5. LAMIVUDINE [Concomitant]
     Dates: start: 20030701, end: 20050501
  6. INDINIVIR SULFATE [Concomitant]
     Dosage: 2 TABLETS THREE TIMES A DAY
     Dates: start: 19980101, end: 20050501
  7. ZIDOVUDINE [Concomitant]
     Dates: start: 20030701, end: 20050501
  8. NEVIRAPINE [Concomitant]
     Dates: start: 20030701, end: 20050501

REACTIONS (1)
  - LICHENOID KERATOSIS [None]
